FAERS Safety Report 9990089 (Version 1)
Quarter: 2014Q1

REPORT INFORMATION
  Report Type: Report from Study
  Country: US (occurrence: US)
  Receive Date: 20140310
  Receipt Date: 20140310
  Transmission Date: 20141002
  Serious: No
  Sender: FDA-Public Use
  Company Number: US-ABBVIE-13P-163-1136945-00

PATIENT
  Age: 50 Year
  Sex: Male
  Weight: 99.88 kg

DRUGS (9)
  1. HUMIRA [Suspect]
     Indication: RHEUMATOID ARTHRITIS
     Dates: start: 201204
  2. PREDNISONE [Suspect]
     Indication: RHEUMATOID ARTHRITIS
  3. PREDNISONE [Suspect]
     Dosage: 1/2 TABLET
  4. CIMZIA [Suspect]
     Indication: RHEUMATOID ARTHRITIS
     Dates: end: 2012
  5. URSO FORTE [Concomitant]
     Indication: LIVER DISORDER
  6. MELOXICAM [Concomitant]
     Indication: RHEUMATOID ARTHRITIS
  7. ALLEGRA [Concomitant]
     Indication: SEASONAL ALLERGY
  8. OMEPRAZOLE [Concomitant]
     Indication: GASTRIC DISORDER
  9. OMEPRAZOLE [Concomitant]
     Indication: PROPHYLAXIS

REACTIONS (4)
  - Pain in extremity [Not Recovered/Not Resolved]
  - Pain [Not Recovered/Not Resolved]
  - Oral candidiasis [Recovered/Resolved]
  - Rhinorrhoea [Recovered/Resolved]
